FAERS Safety Report 12228838 (Version 1)
Quarter: 2016Q1

REPORT INFORMATION
  Report Type: Spontaneous
  Country: US (occurrence: None)
  Receive Date: 20160331
  Receipt Date: 20160331
  Transmission Date: 20160526
  Serious: Yes (Life-Threatening, Hospitalization)
  Sender: FDA-Public Use
  Company Number: None

PATIENT
  Age: 48 Year
  Sex: Female
  Weight: 107.96 kg

DRUGS (13)
  1. VITAMIN D [Concomitant]
     Active Substance: CHOLECALCIFEROL
  2. METFORMIN [Concomitant]
     Active Substance: METFORMIN HYDROCHLORIDE
  3. SIMVASTATIN. [Concomitant]
     Active Substance: SIMVASTATIN
  4. MULTIVITAMIN [Concomitant]
     Active Substance: VITAMINS
  5. VICTOZA [Concomitant]
     Active Substance: LIRAGLUTIDE
  6. ENABLEX [Concomitant]
     Active Substance: DARIFENACIN HYDROBROMIDE
  7. CALCIUM [Concomitant]
     Active Substance: CALCIUM
  8. FARXIGA [Suspect]
     Active Substance: DAPAGLIFLOZIN PROPANEDIOL
     Indication: DIABETES MELLITUS INADEQUATE CONTROL
     Dosage: 7 TABLET(S) IN THE MORNING TAKEN BY MOUTH
     Route: 048
     Dates: start: 20160325, end: 20160326
  9. ENALAPRIL [Concomitant]
     Active Substance: ENALAPRIL
  10. LOVAZA [Concomitant]
     Active Substance: OMEGA-3-ACID ETHYL ESTERS
  11. ASPIRIN. [Concomitant]
     Active Substance: ASPIRIN
  12. FARXIGA [Suspect]
     Active Substance: DAPAGLIFLOZIN PROPANEDIOL
     Indication: WEIGHT DECREASED
     Dosage: 7 TABLET(S) IN THE MORNING TAKEN BY MOUTH
     Route: 048
     Dates: start: 20160325, end: 20160326
  13. NIACIN. [Concomitant]
     Active Substance: NIACIN

REACTIONS (4)
  - Constipation [None]
  - Presyncope [None]
  - Ketoacidosis [None]
  - Nausea [None]

NARRATIVE: CASE EVENT DATE: 20160327
